FAERS Safety Report 9861030 (Version 1)
Quarter: 2014Q1

REPORT INFORMATION
  Report Type: Spontaneous
  Country: US (occurrence: US)
  Receive Date: 20140202
  Receipt Date: 20140202
  Transmission Date: 20141002
  Serious: No
  Sender: FDA-Public Use
  Company Number: US-009507513-1401USA011026

PATIENT
  Sex: 0

DRUGS (13)
  1. INVANZ [Suspect]
     Indication: URINARY TRACT INFECTION
     Dosage: 1 GRAM ONCE
     Route: 042
     Dates: start: 20140122
  2. COZAAR [Concomitant]
     Route: 048
  3. MIRALAX [Concomitant]
     Route: 048
  4. NORVASC [Concomitant]
  5. ANALGESIC BALM (MENTHOL (+) METHYL SALICYLATE) [Concomitant]
  6. LIPITOR [Concomitant]
  7. KEFLEX [Concomitant]
  8. CALCIUM (UNSPECIFIED) (+) VITAMIN D (UNSPECIFIED) [Concomitant]
  9. METOPROLOL [Concomitant]
  10. MINERALS (UNSPECIFIED) (+) VITAMINS (UNSPECIFIED) [Concomitant]
  11. NYSTATIN [Concomitant]
  12. PANTOPRAZOLE [Concomitant]
  13. SENOKOT (SENNA) [Concomitant]

REACTIONS (2)
  - Atrial fibrillation [Unknown]
  - Wrong technique in drug usage process [Unknown]
